FAERS Safety Report 15782084 (Version 6)
Quarter: 2019Q2

REPORT INFORMATION
  Report Type: Spontaneous
  Country: US (occurrence: US)
  Receive Date: 20190102
  Receipt Date: 20190610
  Transmission Date: 20190711
  Serious: Yes (Other)
  Sender: FDA-Public Use
  Company Number: US-PFIZER INC-2018537151

PATIENT
  Age: 65 Year
  Sex: Female
  Weight: 82 kg

DRUGS (2)
  1. IBRANCE [Suspect]
     Active Substance: PALBOCICLIB
     Indication: BREAST CANCER METASTATIC
     Dosage: 100 MG, CYCLIC (100MG Q 21DAYS OF 28 DAY CYCLE)
     Route: 048
     Dates: start: 20180403
  2. IBRANCE [Suspect]
     Active Substance: PALBOCICLIB
     Dosage: 100 MG, CYCLIC(21 DAYS ON, 7 DAYS OFF)
     Route: 048
     Dates: start: 20180830, end: 20181217

REACTIONS (9)
  - Sinusitis [Unknown]
  - Neutropenia [Recovered/Resolved]
  - Bronchitis [Unknown]
  - White blood cell count decreased [Unknown]
  - Nasopharyngitis [Unknown]
  - Oropharyngeal pain [Unknown]
  - Gastrointestinal motility disorder [Unknown]
  - Cataract [Unknown]
  - Ear pain [Unknown]

NARRATIVE: CASE EVENT DATE: 20190524
